FAERS Safety Report 5214273-9 (Version None)
Quarter: 2007Q1

REPORT INFORMATION
  Report Type: 
  Country: None (occurrence: None)
  Receive Date: 20070122
  Receipt Date: 20070112
  Transmission Date: 20070707
  Serious: Yes (Life-Threatening, Hospitalization, Disabling)
  Sender: FDA-Public Use
  Company Number: US-JNJFOC-20060503589

PATIENT
  Sex: Female
  Weight: 51 kg

DRUGS (24)
  1. INFLIXIMAB [Suspect]
     Route: 042
  2. INFLIXIMAB [Suspect]
     Route: 042
  3. INFLIXIMAB [Suspect]
     Route: 042
  4. INFLIXIMAB [Suspect]
     Route: 042
  5. INFLIXIMAB [Suspect]
     Route: 042
  6. INFLIXIMAB [Suspect]
     Route: 042
  7. INFLIXIMAB [Suspect]
     Route: 042
  8. INFLIXIMAB [Suspect]
     Route: 042
  9. INFLIXIMAB [Suspect]
     Route: 042
  10. INFLIXIMAB [Suspect]
     Route: 042
  11. INFLIXIMAB [Suspect]
     Route: 042
  12. INFLIXIMAB [Suspect]
     Route: 042
  13. INFLIXIMAB [Suspect]
     Route: 042
  14. INFLIXIMAB [Suspect]
     Route: 042
  15. INFLIXIMAB [Suspect]
     Route: 042
  16. INFLIXIMAB [Suspect]
     Route: 042
  17. INFLIXIMAB [Suspect]
     Indication: CROHN'S DISEASE
     Route: 042
  18. PREDNISONE [Concomitant]
     Indication: CROHN'S DISEASE
  19. ANTIBIOTICS [Concomitant]
     Indication: CROHN'S DISEASE
  20. CORTICOSTEROIDS [Concomitant]
     Indication: CROHN'S DISEASE
  21. NARCOTIC ANALGESICS [Concomitant]
     Indication: CROHN'S DISEASE
  22. ANTIDEPRESSANTS [Concomitant]
     Indication: CROHN'S DISEASE
  23. ZOFRAN [Concomitant]
     Indication: CROHN'S DISEASE
  24. DIPHENHYDRAMINE HCL [Concomitant]
     Indication: CROHN'S DISEASE

REACTIONS (7)
  - ABDOMINAL ABSCESS [None]
  - CROHN'S DISEASE [None]
  - ELECTROMECHANICAL DISSOCIATION [None]
  - ENTEROCUTANEOUS FISTULA [None]
  - PULMONARY EMBOLISM [None]
  - SEPTIC EMBOLUS [None]
  - WOUND INFECTION [None]
